FAERS Safety Report 20550535 (Version 1)
Quarter: 2022Q1

REPORT INFORMATION
  Report Type: Spontaneous
  Country: US (occurrence: US)
  Receive Date: 20220304
  Receipt Date: 20220304
  Transmission Date: 20220423
  Serious: Yes (Other)
  Sender: FDA-Public Use
  Company Number: US-PURDUE-USA-2020-0282314

PATIENT
  Sex: Male

DRUGS (1)
  1. OXYCONTIN [Suspect]
     Active Substance: OXYCODONE HYDROCHLORIDE
     Indication: Back pain
     Dosage: UNKNOWN
     Route: 048
     Dates: start: 1990

REACTIONS (10)
  - Drug dependence [Unknown]
  - Hallucination [Unknown]
  - Paranoia [Unknown]
  - Anxiety [Unknown]
  - Confusional state [Unknown]
  - Delusion [Unknown]
  - Tremor [Unknown]
  - Agitation [Unknown]
  - Pain [Unknown]
  - Emotional distress [Unknown]
